FAERS Safety Report 23332313 (Version 1)
Quarter: 2023Q4

REPORT INFORMATION
  Report Type: Spontaneous
  Country: US (occurrence: US)
  Receive Date: 20231222
  Receipt Date: 20231222
  Transmission Date: 20240109
  Serious: No
  Sender: FDA-Public Use
  Company Number: US-JNJFOC-20231209593

PATIENT
  Age: 49 Year
  Sex: Male

DRUGS (11)
  1. TYLENOL [Suspect]
     Active Substance: ACETAMINOPHEN
     Indication: Headache
     Route: 065
     Dates: start: 2023
  2. REMODULIN [Concomitant]
     Active Substance: TREPROSTINIL
     Indication: Pulmonary arterial hypertension
     Dosage: CONTINUING, IV DRIP
     Route: 041
     Dates: start: 202103, end: 202310
  3. REMODULIN [Concomitant]
     Active Substance: TREPROSTINIL
     Dosage: 0.060 UG/KG, CONTINUING, IV DRIP
     Route: 041
     Dates: start: 202103
  4. TREPROSTINIL [Concomitant]
     Active Substance: TREPROSTINIL
     Indication: Pulmonary arterial hypertension
     Dosage: (TREPROSTINIL DIETHANOLAMINE) EXTENDED RELEASE TABLET, 10 MG, TID (USING 4 TABLET OF 2.5 MG), ORAL U
     Route: 048
     Dates: start: 202310, end: 2023
  5. TREPROSTINIL [Concomitant]
     Active Substance: TREPROSTINIL
     Route: 048
     Dates: start: 202310, end: 2023
  6. TREPROSTINIL [Concomitant]
     Active Substance: TREPROSTINIL
     Dosage: 10.375 MG, TID, ORAL USE
     Route: 048
     Dates: start: 2023, end: 2023
  7. TREPROSTINIL [Concomitant]
     Active Substance: TREPROSTINIL
     Route: 048
     Dates: end: 2023
  8. TREPROSTINIL [Concomitant]
     Active Substance: TREPROSTINIL
     Dosage: ONGOING
     Route: 048
     Dates: end: 2023
  9. EXCEDRIN PM [Concomitant]
     Active Substance: ACETAMINOPHEN\DIPHENHYDRAMINE\DIPHENHYDRAMINE CITRATE
     Indication: Headache
     Route: 065
     Dates: start: 202310
  10. EXCEDRIN MIGRAINE [Concomitant]
     Active Substance: ACETAMINOPHEN\ASPIRIN\CAFFEINE
     Indication: Headache
     Route: 065
     Dates: start: 2023
  11. SILDENAFIL [Concomitant]
     Active Substance: SILDENAFIL
     Indication: Product used for unknown indication
     Route: 065

REACTIONS (1)
  - Product use in unapproved indication [Unknown]

NARRATIVE: CASE EVENT DATE: 20230101
